FAERS Safety Report 7751918-3 (Version None)
Quarter: 2011Q3

REPORT INFORMATION
  Report Type: 
  Country: None (occurrence: None)
  Receive Date: 20110914
  Receipt Date: 20110914
  Transmission Date: 20111222
  Serious: Yes (Other)
  Sender: FDA-Public Use
  Company Number: None

PATIENT
  Age: 72 Year
  Sex: Female
  Weight: 99.7913 kg

DRUGS (16)
  1. VIGAMOX [Concomitant]
  2. BYETTA [Concomitant]
  3. TRIAMCINOLONE [Concomitant]
  4. LANTUS [Concomitant]
  5. PREDNISONE [Concomitant]
  6. EVISTA [Concomitant]
  7. CEPHALEXIN [Concomitant]
  8. ACYCLOVIR [Concomitant]
  9. VICTOZA [Concomitant]
  10. HYDROCHLOROTHIAZIDE [Concomitant]
  11. LISINOPRIL [Concomitant]
  12. CLOMTRIMAZOLE [Concomitant]
  13. CARVEDILOL [Concomitant]
  14. ARANESP [Suspect]
     Indication: NEPHROGENIC ANAEMIA
     Dosage: 100MCG MONTHY UNDER THE SKIN
     Route: 058
     Dates: start: 20070601
  15. GABAPENTIN [Concomitant]
  16. AMLODIPINE [Concomitant]

REACTIONS (4)
  - DIZZINESS [None]
  - FALL [None]
  - DEHYDRATION [None]
  - URINARY TRACT INFECTION [None]
